FAERS Safety Report 6960394-X (Version None)
Quarter: 2010Q3

REPORT INFORMATION
  Report Type: 
  Country: None (occurrence: None)
  Receive Date: 20100901
  Receipt Date: 20100823
  Transmission Date: 20110219
  Serious: Yes (Other)
  Sender: FDA-Public Use
  Company Number: IL-TEVA-245921ISR

PATIENT
  Age: 60 Year
  Sex: Female

DRUGS (4)
  1. FUROSEMIDE [Suspect]
     Dosage: 40-60MG
  2. FUROSEMIDE [Suspect]
  3. ETORICOXIB [Suspect]
  4. ORLISTAT [Suspect]
     Dosage: 120-240 MG/DAY

REACTIONS (1)
  - RENAL FAILURE [None]
